FAERS Safety Report 15098730 (Version 1)
Quarter: 2018Q3

REPORT INFORMATION
  Report Type: Spontaneous
  Country: ES (occurrence: ES)
  Receive Date: 20180702
  Receipt Date: 20180702
  Transmission Date: 20181010
  Serious: Yes (Death, Hospitalization)
  Sender: FDA-Public Use
  Company Number: ES-MYLANLABS-2018M1046694

PATIENT
  Age: 76 Year
  Sex: Male

DRUGS (7)
  1. ALDACTONE [Concomitant]
     Active Substance: SPIRONOLACTONE
     Indication: PRODUCT USED FOR UNKNOWN INDICATION
     Dosage: 1 CP DIA
     Route: 048
     Dates: start: 20170428
  2. AMIODARONA                         /00133101/ [Concomitant]
     Active Substance: AMIODARONE
     Indication: PRODUCT USED FOR UNKNOWN INDICATION
     Dosage: 200 MG DIA
     Route: 048
     Dates: start: 20170428
  3. QUETIAPINA                         /01270901/ [Concomitant]
     Active Substance: QUETIAPINE
     Indication: PRODUCT USED FOR UNKNOWN INDICATION
     Dosage: 25 MG DIA
     Route: 048
     Dates: start: 20170428
  4. PANTOPRAZOL                        /01263201/ [Concomitant]
     Active Substance: PANTOPRAZOLE
     Indication: PRODUCT USED FOR UNKNOWN INDICATION
     Dosage: 20 MG DIA
     Route: 048
  5. PROFA [Concomitant]
     Indication: PRODUCT USED FOR UNKNOWN INDICATION
     Dosage: L?X?V
     Route: 048
  6. FENTANYL. [Suspect]
     Active Substance: FENTANYL
     Indication: BACK PAIN
     Dosage: TRANSDERMAL C/72H Y. DOSIS ASCENDENTES: 12 MCG DESDE EL 06/06/2017, 25 MCG DESDE EL 09/06/2018, 37,5
     Route: 062
     Dates: start: 20170606, end: 20170620
  7. TRAZODONA                          /00447701/ [Concomitant]
     Active Substance: TRAZODONE HYDROCHLORIDE
     Indication: PRODUCT USED FOR UNKNOWN INDICATION
     Dosage: 0?0?1/2
     Route: 048
     Dates: start: 20170428, end: 20170620

REACTIONS (2)
  - Depressed level of consciousness [Unknown]
  - Delirium [Unknown]

NARRATIVE: CASE EVENT DATE: 20170619
